FAERS Safety Report 17061027 (Version 2)
Quarter: 2019Q4

REPORT INFORMATION
  Report Type: Spontaneous
  Country: CA (occurrence: US)
  Receive Date: 20191121
  Receipt Date: 20191219
  Transmission Date: 20200122
  Serious: Yes (Other)
  Sender: FDA-Public Use
  Company Number: CA-BAYER-2019-210269

PATIENT
  Age: 23 Year
  Sex: Female
  Weight: 71.66 kg

DRUGS (4)
  1. LOTRISONE [Concomitant]
     Active Substance: BETAMETHASONE DIPROPIONATE\CLOTRIMAZOLE
     Dosage: UNK UNK, BID
     Route: 061
  2. SKYLA [Suspect]
     Active Substance: LEVONORGESTREL
     Indication: CONTRACEPTION
     Dosage: 14 MCG/24HR, CONT
     Route: 015
     Dates: start: 20171027, end: 20190925
  3. DIFLUCAN [Concomitant]
     Active Substance: FLUCONAZOLE
     Dosage: 150 MG, QD
  4. FLAGYL [METRONIDAZOLE BENZOATE] [Concomitant]
     Active Substance: METRONIDAZOLE BENZOATE
     Dosage: 500 MG, BID

REACTIONS (4)
  - Genital haemorrhage [None]
  - Abdominal pain lower [None]
  - Pelvic pain [None]
  - Perineal pain [None]

NARRATIVE: CASE EVENT DATE: 2019
